FAERS Safety Report 14702736 (Version 1)
Quarter: 2018Q2

REPORT INFORMATION
  Report Type: Spontaneous
  Country: EG (occurrence: EG)
  Receive Date: 20180402
  Receipt Date: 20180402
  Transmission Date: 20180711
  Serious: Yes (Other)
  Sender: FDA-Public Use
  Company Number: EG-ROCHE-2095575

PATIENT
  Age: 54 Year
  Sex: Male

DRUGS (1)
  1. GAZYVARO [Suspect]
     Active Substance: OBINUTUZUMAB
     Indication: B-CELL LYMPHOMA
     Dosage: DAY 1: 1000 MG
     Route: 042
     Dates: start: 201803

REACTIONS (2)
  - Hepatitis C virus test positive [Unknown]
  - Contraindication to medical treatment [Unknown]
